FAERS Safety Report 7827740-6 (Version None)
Quarter: 2011Q4

REPORT INFORMATION
  Report Type: 
  Country: None (occurrence: None)
  Receive Date: 20111019
  Receipt Date: 20111019
  Transmission Date: 20120403
  Serious: Yes (Hospitalization)
  Sender: FDA-Public Use
  Company Number: None

PATIENT
  Age: 25 Year
  Sex: Male
  Weight: 76.3857 kg

DRUGS (1)
  1. ERLOTINIB HYDROCHLORIDE [Suspect]
     Indication: INVESTIGATION
     Dosage: 150 MG P.O.
     Route: 048
     Dates: start: 20110925, end: 20110925

REACTIONS (9)
  - VIRAL INFECTION [None]
  - INFECTIOUS MONONUCLEOSIS [None]
  - INCREASED UPPER AIRWAY SECRETION [None]
  - PYREXIA [None]
  - NAUSEA [None]
  - TONSILLITIS [None]
  - ASTHENIA [None]
  - OROPHARYNGEAL PAIN [None]
  - PHARYNGEAL ERYTHEMA [None]
